FAERS Safety Report 8481701-5 (Version None)
Quarter: 2012Q3

REPORT INFORMATION
  Report Type: 
  Country: None (occurrence: None)
  Receive Date: 20120702
  Receipt Date: 20120618
  Transmission Date: 20120928
  Serious: No
  Sender: FDA-Public Use
  Company Number: US-ASTRAZENECA-2012SE41223

PATIENT
  Age: 77 Year
  Sex: Female

DRUGS (2)
  1. BROVANA [Concomitant]
  2. PULMICORT [Suspect]
     Route: 055

REACTIONS (6)
  - OFF LABEL USE [None]
  - JOINT RANGE OF MOTION DECREASED [None]
  - OSTEOARTHRITIS [None]
  - INTENTIONAL DRUG MISUSE [None]
  - SLUGGISHNESS [None]
  - DYSPNOEA [None]
